FAERS Safety Report 14609385 (Version 2)
Quarter: 2018Q2

REPORT INFORMATION
  Report Type: Spontaneous
  Country: US (occurrence: US)
  Receive Date: 20180307
  Receipt Date: 20180418
  Transmission Date: 20180711
  Serious: Yes (Hospitalization)
  Sender: FDA-Public Use
  Company Number: US-ASTRAZENECA-2018SE26105

PATIENT
  Age: 22007 Day
  Sex: Male
  Weight: 58.1 kg

DRUGS (2)
  1. SYMBICORT [Suspect]
     Active Substance: BUDESONIDE\FORMOTEROL FUMARATE DIHYDRATE
     Indication: EMPHYSEMA
     Dosage: 160/4.5 MCG, UNKNOWN UNKNOWN
     Route: 055
     Dates: start: 2017
  2. SYMBICORT [Suspect]
     Active Substance: BUDESONIDE\FORMOTEROL FUMARATE DIHYDRATE
     Indication: CHRONIC OBSTRUCTIVE PULMONARY DISEASE
     Dosage: 160/4.5 MCG, UNKNOWN UNKNOWN
     Route: 055
     Dates: start: 2017

REACTIONS (11)
  - Eye disorder [Unknown]
  - Pneumothorax [Recovering/Resolving]
  - Visual acuity reduced [Unknown]
  - Weight decreased [Unknown]
  - Intentional device misuse [Unknown]
  - Musculoskeletal discomfort [Unknown]
  - Underdose [Unknown]
  - Weight fluctuation [Unknown]
  - Circumstance or information capable of leading to medication error [Unknown]
  - Body height decreased [Unknown]
  - Device malfunction [Unknown]

NARRATIVE: CASE EVENT DATE: 20171122
